FAERS Safety Report 10719964 (Version 2)
Quarter: 2015Q1

REPORT INFORMATION
  Report Type: Spontaneous
  Country: US (occurrence: US)
  Receive Date: 20150119
  Receipt Date: 20150119
  Transmission Date: 20150721
  Serious: No
  Sender: FDA-Public Use
  Company Number: US-UNITED THERAPEUTICS-UNT-2014-011516

PATIENT
  Sex: Female
  Weight: 70.3 kg

DRUGS (1)
  1. REMODULIN [Suspect]
     Active Substance: TREPROSTINIL
     Indication: PRODUCT USED FOR UNKNOWN INDICATION
     Route: 058

REACTIONS (7)
  - Dyspnoea [Unknown]
  - Dizziness [Unknown]
  - Sinusitis [Unknown]
  - Headache [Unknown]
  - Pallor [Unknown]
  - Device issue [Unknown]
  - Drug dose omission [Unknown]
